FAERS Safety Report 9672271 (Version 1)
Quarter: 2013Q4

REPORT INFORMATION
  Report Type: Spontaneous
  Country: US (occurrence: US)
  Receive Date: 20131106
  Receipt Date: 20131106
  Transmission Date: 20140711
  Serious: Yes (Hospitalization)
  Sender: FDA-Public Use
  Company Number: US-ASTRAZENECA-2013SE80183

PATIENT
  Age: 955 Month
  Sex: Female
  Weight: 63.5 kg

DRUGS (7)
  1. LISINOPRIL [Suspect]
     Indication: BLOOD PRESSURE ABNORMAL
     Route: 048
     Dates: start: 2008, end: 2012
  2. PULMICORT FLEXHALER [Suspect]
     Indication: COUGH
     Route: 055
     Dates: start: 201310
  3. RHINOCORT AQUA [Suspect]
     Indication: COUGH
     Dosage: 32MG
     Route: 045
     Dates: start: 201310
  4. NEXIUM [Suspect]
     Indication: COUGH
     Route: 048
     Dates: start: 20131026
  5. DIOVAN [Concomitant]
     Indication: BLOOD PRESSURE ABNORMAL
     Route: 048
     Dates: start: 2012
  6. HYDROCHLORTHIAZIDE [Concomitant]
     Indication: BLOOD PRESSURE ABNORMAL
     Route: 048
  7. SIMVASTATIN [Concomitant]
     Route: 048

REACTIONS (6)
  - Transient ischaemic attack [Unknown]
  - Increased upper airway secretion [Unknown]
  - Cough [Unknown]
  - Cough [Not Recovered/Not Resolved]
  - Intentional drug misuse [Unknown]
  - Drug ineffective [Unknown]
